FAERS Safety Report 9013505 (Version 2)
Quarter: 2013Q1

REPORT INFORMATION
  Report Type: Spontaneous
  Country: DK (occurrence: None)
  Receive Date: 20121231
  Receipt Date: 20130109
  Transmission Date: 20140127
  Serious: Yes (Hospitalization, Other)
  Sender: FDA-Public Use
  Company Number: 2012MA014335

PATIENT
  Age: 55 Year
  Sex: Female

DRUGS (3)
  1. ACETAMINOPHEN + CODEINE PHOSPHATE ORAL SOLUTION USP, 120 MG/12 MG PER 5 ML (ALPHARMA) (GALENIC/PARACETAMOL/CODEINE/) [Suspect]
     Indication: ANALGESIC THERAPY
  2. SUTENT (NO PREF. NAME) [Suspect]
     Indication: RENAL CANCER METASTATIC
  3. SOLPADEINE (SOLPADEINE) [Suspect]
     Indication: ANALGESIC THERAPY

REACTIONS (15)
  - Skin exfoliation [None]
  - Constipation [None]
  - Nausea [None]
  - Rash [None]
  - Somnolence [None]
  - Fatigue [None]
  - Diarrhoea [None]
  - Asthenia [None]
  - Weight increased [None]
  - Fluid retention [None]
  - Deafness [None]
  - Epistaxis [None]
  - Platelet count decreased [None]
  - Alopecia [None]
  - Pigmentation disorder [None]
